FAERS Safety Report 14963377 (Version 1)
Quarter: 2018Q2

REPORT INFORMATION
  Report Type: Spontaneous
  Country: GB (occurrence: GB)
  Receive Date: 20180601
  Receipt Date: 20180601
  Transmission Date: 20180711
  Serious: Yes (Other)
  Sender: FDA-Public Use
  Company Number: GB-MYLANLABS-2018M1037145

PATIENT
  Age: 32 Year
  Sex: Female

DRUGS (1)
  1. CLOZARIL [Suspect]
     Active Substance: CLOZAPINE
     Indication: SCHIZOPHRENIA
     Dosage: UNK
     Route: 048
     Dates: start: 20180504, end: 20180521

REACTIONS (9)
  - Myocarditis [Unknown]
  - Tachycardia [Unknown]
  - High density lipoprotein decreased [Unknown]
  - Troponin I increased [Unknown]
  - Glycosylated haemoglobin decreased [Unknown]
  - Blood bilirubin decreased [Unknown]
  - Blood prolactin increased [Unknown]
  - Pyrexia [Unknown]
  - C-reactive protein increased [Unknown]

NARRATIVE: CASE EVENT DATE: 20180521
